FAERS Safety Report 17026570 (Version 2)
Quarter: 2020Q1

REPORT INFORMATION
  Report Type: Report from Study
  Country: DE (occurrence: DE)
  Receive Date: 20191113
  Receipt Date: 20200207
  Transmission Date: 20200409
  Serious: Yes (Other)
  Sender: FDA-Public Use
  Company Number: PHHY2015DE151550

PATIENT
  Sex: Male
  Weight: 48 kg

DRUGS (12)
  1. METHPRED [Concomitant]
     Dosage: 2 G
     Route: 065
     Dates: start: 20180711, end: 20190713
  2. GILENYA [Suspect]
     Active Substance: FINGOLIMOD HYDROCHLORIDE
     Indication: MULTIPLE SCLEROSIS
     Dosage: 0.5 MG, QD
     Route: 048
     Dates: start: 20150812, end: 20170619
  3. GILENYA [Suspect]
     Active Substance: FINGOLIMOD HYDROCHLORIDE
     Dosage: 0.5 MG, QD
     Route: 048
     Dates: start: 20170627
  4. METHPRED [Concomitant]
     Dosage: 1 G
     Route: 065
     Dates: start: 20180618, end: 20180620
  5. METFORMIN [Concomitant]
     Active Substance: METFORMIN HYDROCHLORIDE
     Indication: DIABETES MELLITUS
     Dosage: 500 MG, UNK
     Route: 065
     Dates: start: 20141201, end: 20150909
  6. DULOXETINE. [Concomitant]
     Active Substance: DULOXETINE
     Indication: PARAESTHESIA
     Dosage: 30 MG, UNK
     Route: 065
     Dates: start: 20150808, end: 20150902
  7. METFORMIN [Concomitant]
     Active Substance: METFORMIN HYDROCHLORIDE
     Dosage: 2000 G
     Route: 065
     Dates: start: 20180914
  8. METFORMIN [Concomitant]
     Active Substance: METFORMIN HYDROCHLORIDE
     Dosage: 1000 MG
     Route: 065
     Dates: start: 20150910, end: 20180713
  9. METHPRED [Concomitant]
     Indication: MULTIPLE SCLEROSIS RELAPSE
     Dosage: 1000 MG
     Route: 065
     Dates: start: 20180601, end: 20180605
  10. DEKRISTOL [Concomitant]
     Active Substance: CHOLECALCIFEROL
     Indication: VITAMIN D DEFICIENCY
     Dosage: 20000 IU, QW
     Route: 065
     Dates: start: 20180316
  11. IBUPROFEN. [Concomitant]
     Active Substance: IBUPROFEN
     Indication: HEADACHE
     Dosage: 600 MG, UNK
     Route: 065
     Dates: start: 20100101
  12. MODAFINIL. [Concomitant]
     Active Substance: MODAFINIL
     Indication: FATIGUE
     Dosage: 100 MG, UNK
     Route: 065
     Dates: start: 20150522, end: 20170101

REACTIONS (3)
  - CD4 lymphocytes decreased [Unknown]
  - Fatigue [Not Recovered/Not Resolved]
  - Lymphopenia [Not Recovered/Not Resolved]

NARRATIVE: CASE EVENT DATE: 20150819
